FAERS Safety Report 14356246 (Version 1)
Quarter: 2018Q1

REPORT INFORMATION
  Report Type: Spontaneous
  Country: US (occurrence: US)
  Receive Date: 20180105
  Receipt Date: 20180105
  Transmission Date: 20180509
  Serious: No
  Sender: FDA-Public Use
  Company Number: US-ALLERGAN-1759988US

PATIENT
  Age: 45 Year
  Sex: Female

DRUGS (1)
  1. DEOXYCHOLIC ACID UNK [Suspect]
     Active Substance: DEOXYCHOLIC ACID
     Indication: FAT TISSUE DECREASED
     Route: 058

REACTIONS (9)
  - Injection site pain [Unknown]
  - Injection site discomfort [None]
  - Application site wound [Unknown]
  - Injection site nodule [Unknown]
  - Injection site erythema [Unknown]
  - Injection site induration [Unknown]
  - Eschar [Recovered/Resolved]
  - Discomfort [Unknown]
  - Hypertrophic scar [Recovering/Resolving]
